FAERS Safety Report 8738008 (Version 3)
Quarter: 2012Q4

REPORT INFORMATION
  Report Type: 
  Country: US (occurrence: US)
  Receive Date: 20120823
  Receipt Date: 20121003
  Transmission Date: 20130627
  Serious: Yes (Other)
  Sender: FDA-Public Use
  Company Number: US-BIOGENIDEC-2012BI031382

PATIENT
  Age: 30 Year
  Sex: Female

DRUGS (8)
  1. AVONEX [Suspect]
     Indication: MULTIPLE SCLEROSIS
     Route: 030
     Dates: start: 20110311, end: 20111104
  2. AVONEX [Suspect]
     Indication: MULTIPLE SCLEROSIS
     Route: 030
     Dates: end: 20120711
  3. CYMBALTA [Concomitant]
     Route: 048
  4. TOPOMAX [Concomitant]
     Route: 048
  5. BACLOFEN [Concomitant]
     Route: 048
  6. SYNTHROID [Concomitant]
     Route: 048
  7. PRENATAL MULTIVITAMINS WITH FOLIC ACID [Concomitant]
     Route: 048
  8. NUCYNTA [Concomitant]
     Route: 048

REACTIONS (1)
  - Prolonged labour [Recovered/Resolved]
